FAERS Safety Report 26073492 (Version 1)
Quarter: 2025Q4

REPORT INFORMATION
  Report Type: Spontaneous
  Country: GB (occurrence: GB)
  Receive Date: 20251121
  Receipt Date: 20251121
  Transmission Date: 20260117
  Serious: Yes (Hospitalization, Other)
  Sender: DR REDDYS
  Company Number: None

PATIENT
  Sex: Female

DRUGS (1)
  1. CLARITHROMYCIN [Suspect]
     Active Substance: CLARITHROMYCIN
     Indication: Sinusitis bacterial
     Dosage: 500MG TWICE A DAY
     Dates: start: 20251022

REACTIONS (11)
  - Yellow skin [Recovering/Resolving]
  - Pyrexia [Recovered/Resolved]
  - Headache [Recovered/Resolved]
  - Chest pain [Recovering/Resolving]
  - Yellow skin [Recovered/Resolved]
  - Chromaturia [Recovered/Resolved]
  - Illness [Recovered/Resolved]
  - Hyperhidrosis [Recovered/Resolved]
  - Dizziness postural [Recovered/Resolved]
  - Somnolence [Recovered/Resolved]
  - Decreased appetite [Recovered/Resolved]

NARRATIVE: CASE EVENT DATE: 20251024
